FAERS Safety Report 9791641 (Version 3)
Quarter: 2014Q1

REPORT INFORMATION
  Report Type: Spontaneous
  Country: DE (occurrence: DE)
  Receive Date: 20140102
  Receipt Date: 20140125
  Transmission Date: 20141002
  Serious: Yes (Hospitalization)
  Sender: FDA-Public Use
  Company Number: DE-JNJFOC-20131217090

PATIENT
  Age: 50 Year
  Sex: Male
  Weight: 106 kg

DRUGS (7)
  1. IBUPROFEN [Suspect]
     Indication: THROMBOPHLEBITIS
     Route: 065
  2. XARELTO [Suspect]
     Indication: ATRIAL FIBRILLATION
     Route: 065
  3. XARELTO [Suspect]
     Indication: ATRIAL FIBRILLATION
     Route: 065
     Dates: start: 20131120, end: 20131209
  4. XARELTO [Suspect]
     Indication: CEREBROVASCULAR ACCIDENT PROPHYLAXIS
     Route: 065
  5. XARELTO [Suspect]
     Indication: CEREBROVASCULAR ACCIDENT PROPHYLAXIS
     Route: 065
     Dates: start: 20131120, end: 20131209
  6. VOTUM [Concomitant]
     Indication: HYPERTENSION
     Route: 065
  7. CLEXANE [Concomitant]
     Indication: PRODUCT USED FOR UNKNOWN INDICATION
     Route: 065

REACTIONS (4)
  - Duodenitis [Unknown]
  - Gastritis erosive [Unknown]
  - Gastrointestinal haemorrhage [Unknown]
  - Melaena [Unknown]
